FAERS Safety Report 24900606 (Version 2)
Quarter: 2025Q4

REPORT INFORMATION
  Report Type: Report from Study
  Country: EU (occurrence: EU)
  Receive Date: 20250129
  Receipt Date: 20251013
  Transmission Date: 20260118
  Serious: Yes (Hospitalization, Other)
  Sender: SANDOZ
  Company Number: EU-002147023-NVSC2022DE228889

PATIENT
  Sex: Male

DRUGS (5)
  1. ETANERCEPT [Suspect]
     Active Substance: ETANERCEPT
     Indication: Rheumatoid arthritis
     Dosage: 50 MG, QW
     Route: 058
  2. ETANERCEPT [Suspect]
     Active Substance: ETANERCEPT
     Dosage: 50 MG
     Route: 065
     Dates: start: 202105
  3. ETANERCEPT [Suspect]
     Active Substance: ETANERCEPT
     Dosage: 50MG/EVERY 7 DAYS
     Route: 065
  4. XELJANZ [Suspect]
     Active Substance: TOFACITINIB CITRATE
     Indication: Product used for unknown indication
     Dosage: 10 MG
     Route: 065
     Dates: start: 201706, end: 202105
  5. XELJANZ [Suspect]
     Active Substance: TOFACITINIB CITRATE
     Dosage: 10 MG
     Route: 065

REACTIONS (10)
  - Periprosthetic fracture [Recovered/Resolved]
  - Angina pectoris [Recovered/Resolved]
  - Accident [Recovered/Resolved]
  - Impaired healing [Recovered/Resolved]
  - Postoperative wound complication [Recovered/Resolved]
  - Cardiac discomfort [Recovered/Resolved]
  - Contusion [Recovered/Resolved]
  - Fall [Recovered/Resolved]
  - Respiratory tract infection [Recovered/Resolved]
  - Injury corneal [Recovered/Resolved]

NARRATIVE: CASE EVENT DATE: 20220301
